FAERS Safety Report 13442712 (Version 1)
Quarter: 2017Q2

REPORT INFORMATION
  Report Type: Spontaneous
  Country: US (occurrence: US)
  Receive Date: 20170414
  Receipt Date: 20170414
  Transmission Date: 20170830
  Serious: Yes (Other)
  Sender: FDA-Public Use
  Company Number: None

PATIENT
  Age: 49 Year
  Sex: Male
  Weight: 126 kg

DRUGS (7)
  1. MECLIZINE [Concomitant]
     Active Substance: MECLIZINE HYDROCHLORIDE
  2. OMEPRAZOLE. [Concomitant]
     Active Substance: OMEPRAZOLE
  3. VITAMIN D [Concomitant]
     Active Substance: CHOLECALCIFEROL
  4. SUMATRIPTAN. [Concomitant]
     Active Substance: SUMATRIPTAN
  5. GADOBUTROL (GADOVIST, BAYER) [Suspect]
     Active Substance: GADOBUTROL
     Indication: NUCLEAR MAGNETIC RESONANCE IMAGING
     Route: 042
     Dates: start: 20160928
  6. SERTRALINE [Concomitant]
     Active Substance: SERTRALINE HYDROCHLORIDE
  7. TRAZODONE [Concomitant]
     Active Substance: TRAZODONE HYDROCHLORIDE

REACTIONS (9)
  - Respiratory distress [None]
  - Presyncope [None]
  - Nausea [None]
  - Hyperhidrosis [None]
  - Swelling [None]
  - Dizziness [None]
  - Pain in extremity [None]
  - Chest pain [None]
  - Palpitations [None]

NARRATIVE: CASE EVENT DATE: 20160928
